FAERS Safety Report 6252241-9 (Version None)
Quarter: 2009Q2

REPORT INFORMATION
  Report Type: 
  Country: None (occurrence: None)
  Receive Date: 20090630
  Receipt Date: 20090624
  Transmission Date: 20091009
  Serious: Yes (Other)
  Sender: FDA-Public Use
  Company Number: US-AMGEN-KDL353222

PATIENT
  Sex: Female

DRUGS (7)
  1. PROCRIT [Suspect]
     Indication: ANAEMIA
     Route: 058
     Dates: start: 20081101, end: 20090101
  2. INTERFERON [Concomitant]
  3. RIBAVIRIN [Concomitant]
  4. LISINOPRIL [Concomitant]
  5. PROZAC [Concomitant]
  6. CYMBALTA [Concomitant]
  7. METHADONE [Concomitant]

REACTIONS (1)
  - HAEMOGLOBIN DECREASED [None]
